FAERS Safety Report 19919814 (Version 1)
Quarter: 2021Q4

REPORT INFORMATION
  Report Type: Spontaneous
  Country: US (occurrence: US)
  Receive Date: 20211005
  Receipt Date: 20211005
  Transmission Date: 20220304
  Serious: No
  Sender: FDA-Public Use
  Company Number: US-PFIZER INC-2021326734

PATIENT
  Age: 35 Year

DRUGS (1)
  1. GABAPENTIN [Suspect]
     Active Substance: GABAPENTIN
     Indication: Neuralgia

REACTIONS (4)
  - Swelling [Unknown]
  - Insomnia [Unknown]
  - Feeling abnormal [Unknown]
  - Off label use [Unknown]
